FAERS Safety Report 8405114 (Version 2)
Quarter: 2012Q4

REPORT INFORMATION
  Report Type: 
  Country: US (occurrence: US)
  Receive Date: 20120214
  Receipt Date: 20121120
  Transmission Date: 20130627
  Serious: Yes (Hospitalization)
  Sender: FDA-Public Use
  Company Number: US-GLAXOSMITHKLINE-A0935944A

PATIENT
  Age: 52 Year
  Sex: Female

DRUGS (1)
  1. AVANDIA [Suspect]
     Indication: DIABETES MELLITUS
     Route: 048
     Dates: start: 20080215, end: 20090115

REACTIONS (4)
  - Cerebrovascular accident [Not Recovered/Not Resolved]
  - Eye disorder [Unknown]
  - Dizziness [Unknown]
  - Balance disorder [Unknown]
